FAERS Safety Report 6020442-0 (Version None)
Quarter: 2008Q4

REPORT INFORMATION
  Report Type: 
  Country: None (occurrence: None)
  Receive Date: 20081226
  Receipt Date: 20081215
  Transmission Date: 20090506
  Serious: Yes (Other)
  Sender: FDA-Public Use
  Company Number: BR-ROCHE-603406

PATIENT
  Sex: Female
  Weight: 48 kg

DRUGS (2)
  1. RIVOTRIL [Suspect]
     Indication: SLEEP DISORDER THERAPY
     Dosage: TAKEN 20 DROPS ON 14 DEC 08.
     Route: 048
     Dates: start: 20030101
  2. VYTORIN [Concomitant]
     Route: 048
     Dates: start: 20070101

REACTIONS (3)
  - DRUG INEFFECTIVE [None]
  - NO ADVERSE EVENT [None]
  - OSTEOPOROSIS [None]
